FAERS Safety Report 8578394 (Version 3)
Quarter: 2012Q4

REPORT INFORMATION
  Report Type: Report from Study
  Country: CA (occurrence: CA)
  Receive Date: 20120524
  Receipt Date: 20120918
  Transmission Date: 20130627
  Serious: Yes (Hospitalization)
  Sender: FDA-Public Use
  Company Number: CA-ROCHE-1070277

PATIENT
  Age: 70 Year
  Sex: Female
  Weight: 67 kg

DRUGS (13)
  1. ROACTEMRA [Suspect]
     Indication: RHEUMATOID ARTHRITIS
     Dosage: inturrupted on 11/Apr/2012
     Route: 042
     Dates: start: 20110926
  2. LEFLUNOMIDE [Concomitant]
  3. NORVASC [Concomitant]
  4. NOVOSEMIDE [Concomitant]
  5. PREDNISONE [Concomitant]
  6. VITAMIN D [Concomitant]
  7. FOLIC ACID [Concomitant]
  8. ARTHROTEC [Concomitant]
  9. OXYCONTIN [Concomitant]
  10. PLAQUENIL [Concomitant]
  11. FOSAMAX [Concomitant]
  12. AMLODIPINE [Concomitant]
  13. ALENDRONATE [Concomitant]

REACTIONS (4)
  - Dyspnoea [Not Recovered/Not Resolved]
  - Pulmonary oedema [Recovered/Resolved]
  - Pneumonia [Recovered/Resolved]
  - Oedema peripheral [Unknown]
